FAERS Safety Report 8810789 (Version 1)
Quarter: 2012Q4

REPORT INFORMATION
  Report Type: 
  Country: US (occurrence: US)
  Receive Date: 20120927
  Receipt Date: 20120927
  Transmission Date: 20130627
  Serious: No
  Sender: FDA-Public Use
  Company Number: US-JNJFOC-20120906369

PATIENT
  Sex: Female
  Weight: 86.18 kg

DRUGS (5)
  1. FENTANYL TRANSDERMAL SYSTEM [Suspect]
     Indication: DRUG INTOLERANCE
     Route: 062
     Dates: start: 201206
  2. DURAGESIC [Suspect]
     Indication: BONE PAIN
     Route: 062
     Dates: start: 201207
  3. DURAGESIC [Suspect]
     Indication: BONE DISORDER
     Route: 062
     Dates: start: 201207
  4. NEXIUM [Concomitant]
     Route: 048
     Dates: start: 2006
  5. PREDNISONE [Concomitant]
     Route: 048

REACTIONS (5)
  - Product quality issue [Unknown]
  - Application site reaction [Unknown]
  - Product quality issue [Unknown]
  - Wrong technique in drug usage process [Unknown]
  - Product quality issue [Not Recovered/Not Resolved]
